FAERS Safety Report 8001318-6 (Version None)
Quarter: 2011Q4

REPORT INFORMATION
  Report Type: 
  Country: None (occurrence: None)
  Receive Date: 20111123
  Receipt Date: 20110727
  Transmission Date: 20120403
  Serious: No
  Sender: FDA-Public Use
  Company Number: 336623

PATIENT
  Age: 60 Year
  Sex: Male

DRUGS (3)
  1. AMARYL [Concomitant]
  2. VICTOZA [Suspect]
     Indication: TYPE 2 DIABETES MELLITUS
     Dosage: 0.6 MG, QD, SUBCUTANEOUS 1.2 MG, QD, SUBCUTANEOUS
     Route: 058
     Dates: start: 20110401
  3. METFORMIN HCL [Concomitant]

REACTIONS (4)
  - DYSPNOEA [None]
  - HEART RATE INCREASED [None]
  - FATIGUE [None]
  - BLOOD GLUCOSE INCREASED [None]
